FAERS Safety Report 13804668 (Version 2)
Quarter: 2017Q4

REPORT INFORMATION
  Report Type: Report from Study
  Country: None (occurrence: US)
  Receive Date: 20170728
  Receipt Date: 20171121
  Transmission Date: 20180320
  Serious: Yes (Hospitalization, Other)
  Sender: FDA-Public Use
  Company Number: US-ABBVIE-17K-163-2048100-00

PATIENT
  Age: 62 Year
  Sex: Female

DRUGS (12)
  1. HUMIRA [Suspect]
     Active Substance: ADALIMUMAB
     Indication: RHEUMATOID ARTHRITIS
     Route: 058
     Dates: end: 2015
  2. HUMIRA [Suspect]
     Active Substance: ADALIMUMAB
     Indication: ANKYLOSING SPONDYLITIS
     Route: 058
     Dates: start: 2016, end: 2016
  3. NOVOLOG [Concomitant]
     Active Substance: INSULIN ASPART
     Indication: DIABETES MELLITUS
  4. ALLEGRA [Concomitant]
     Active Substance: FEXOFENADINE HYDROCHLORIDE
     Indication: SEASONAL ALLERGY
  5. CALCIUM [Concomitant]
     Active Substance: CALCIUM
     Indication: OSTEOPENIA
  6. SYSTANE EYE DROP [Concomitant]
     Indication: DRY EYE
  7. TRAZODONE  (NON-ABBVIE) [Concomitant]
     Indication: INSOMNIA
  8. CHLORTHALIDONE. [Concomitant]
     Active Substance: CHLORTHALIDONE
     Indication: FLUID RETENTION
  9. HUMIRA [Suspect]
     Active Substance: ADALIMUMAB
     Indication: PSORIATIC ARTHROPATHY
     Route: 058
  10. BASAGLAR [Concomitant]
     Active Substance: INSULIN GLARGINE
     Indication: DIABETES MELLITUS
  11. VITAMIN D3 [Concomitant]
     Active Substance: CHOLECALCIFEROL
     Indication: PRODUCT USED FOR UNKNOWN INDICATION
  12. LEXAPRO [Concomitant]
     Active Substance: ESCITALOPRAM OXALATE
     Indication: DEPRESSION

REACTIONS (36)
  - Ventricular fibrillation [Recovered/Resolved]
  - Onychomadesis [Unknown]
  - Overdose [Not Recovered/Not Resolved]
  - Mobility decreased [Unknown]
  - Acute kidney injury [Recovered/Resolved]
  - Tooth fracture [Recovered/Resolved]
  - Tooth abscess [Recovered/Resolved]
  - Torsade de pointes [Recovered/Resolved]
  - Metabolic acidosis [Not Recovered/Not Resolved]
  - Cardiac failure [Recovered/Resolved]
  - Psoriasis [Unknown]
  - Joint range of motion decreased [Unknown]
  - Renal disorder [Unknown]
  - Dyskinesia [Recovered/Resolved]
  - Tooth infection [Recovered/Resolved]
  - Heart rate increased [Recovered/Resolved]
  - Leukaemia [Not Recovered/Not Resolved]
  - Diarrhoea [Recovered/Resolved]
  - Osteoarthritis [Recovered/Resolved]
  - Loss of consciousness [Recovered/Resolved]
  - Ventricular hypertrophy [Not Recovered/Not Resolved]
  - Rheumatoid arthritis [Unknown]
  - Chronic obstructive pulmonary disease [Not Recovered/Not Resolved]
  - Lymphocyte count increased [Not Recovered/Not Resolved]
  - Psoriatic arthropathy [Unknown]
  - Weight decreased [Unknown]
  - Neutrophil count decreased [Not Recovered/Not Resolved]
  - Blood pressure increased [Recovered/Resolved]
  - Juvenile idiopathic arthritis [Unknown]
  - Eye disorder [Unknown]
  - Restrictive pulmonary disease [Not Recovered/Not Resolved]
  - Facial spasm [Not Recovered/Not Resolved]
  - Blood magnesium decreased [Unknown]
  - pH urine decreased [Not Recovered/Not Resolved]
  - Localised infection [Recovered/Resolved]
  - Upper respiratory tract infection [Recovered/Resolved]

NARRATIVE: CASE EVENT DATE: 2014
